FAERS Safety Report 7573706-3 (Version None)
Quarter: 2011Q2

REPORT INFORMATION
  Report Type: 
  Country: None (occurrence: None)
  Receive Date: 20110627
  Receipt Date: 20110616
  Transmission Date: 20111010
  Serious: Yes (Other)
  Sender: FDA-Public Use
  Company Number: JP-ROCHE-779413

PATIENT
  Sex: Female

DRUGS (13)
  1. TOCILIZUMAB [Suspect]
     Route: 041
     Dates: start: 20090408, end: 20090408
  2. TOCILIZUMAB [Suspect]
     Route: 041
     Dates: start: 20090812, end: 20090812
  3. TOCILIZUMAB [Suspect]
     Indication: RHEUMATOID ARTHRITIS
     Route: 041
     Dates: start: 20090304, end: 20090304
  4. PANCREAZE [Concomitant]
     Route: 048
     Dates: end: 20090311
  5. PREDNISOLONE [Concomitant]
     Route: 048
     Dates: end: 20090220
  6. FUROSEMIDE [Concomitant]
     Dosage: FORM: MINUTE GRAIN
     Route: 048
     Dates: end: 20090311
  7. TOCILIZUMAB [Suspect]
     Route: 041
     Dates: start: 20090708, end: 20090708
  8. DOXAZOSIN MESYLATE [Concomitant]
     Route: 048
     Dates: end: 20090311
  9. MICARDIS [Concomitant]
     Route: 048
     Dates: end: 20090311
  10. PREDNISOLONE [Concomitant]
     Route: 048
     Dates: start: 20090221, end: 20090311
  11. ADALAT [Concomitant]
     Dosage: FORM: PERORAL AGENT
     Route: 048
     Dates: end: 20090311
  12. TOCILIZUMAB [Suspect]
     Route: 041
     Dates: start: 20090513, end: 20090513
  13. TOCILIZUMAB [Suspect]
     Route: 041
     Dates: start: 20090610, end: 20090610

REACTIONS (2)
  - DIALYSIS [None]
  - THROMBOCYTOPENIA [None]
